FAERS Safety Report 25720441 (Version 1)
Quarter: 2025Q3

REPORT INFORMATION
  Report Type: Spontaneous
  Country: GB (occurrence: GB)
  Receive Date: 20250825
  Receipt Date: 20250825
  Transmission Date: 20251020
  Serious: Yes (Life-Threatening, Other)
  Sender: Haleon PLC
  Company Number: None

PATIENT
  Age: 46 Year
  Sex: Female
  Weight: 72 kg

DRUGS (20)
  1. IBUPROFEN [Suspect]
     Active Substance: IBUPROFEN
     Indication: Product used for unknown indication
     Route: 048
  2. BUTYLSCOPOLAMINE BROMIDE [Concomitant]
     Active Substance: BUTYLSCOPOLAMINE BROMIDE
     Indication: Ill-defined disorder
     Dosage: DOSE FORM: TPP YC - PLEASE RECLASSIFY.?TAKE TWO 4 TIMES/DAY
     Dates: start: 20250204
  3. SENNA [Concomitant]
     Active Substance: SENNOSIDES
     Indication: Ill-defined disorder
     Dates: start: 20250204
  4. BECLOMETHASONE\FORMOTEROL [Concomitant]
     Active Substance: BECLOMETHASONE\FORMOTEROL
     Indication: Ill-defined disorder
     Dates: start: 20250821
  5. TRAMADOL [Concomitant]
     Active Substance: TRAMADOL
     Indication: Ill-defined disorder
     Dates: start: 20250204
  6. FERROUS SULFATE [Concomitant]
     Active Substance: FERROUS SULFATE
     Indication: Ill-defined disorder
     Dosage: DOSE FORM: TPP YC - PLEASE RECLASSIFY.?TAKE ONE ONCE DAILY FOR 3 MONTHS
     Dates: start: 20250527, end: 20250819
  7. PROPRANOLOL [Concomitant]
     Active Substance: PROPRANOLOL HYDROCHLORIDE
     Indication: Ill-defined disorder
     Dosage: DOSE FORM: TPP YC - PLEASE RECLASSIFY.?TAKE ONE TWICE A DAY TO PREVENT PALPITATIONS OR...
     Dates: start: 20250204
  8. CEPHALEXIN [Concomitant]
     Active Substance: CEPHALEXIN
     Indication: Ill-defined disorder
     Dosage: DOSE FORM: TPP YC - PLEASE RECLASSIFY.?TAKE ONE CAPSULE TWICE A DAY FOR 7 DAYS, TO TRE...
     Dates: start: 20250618, end: 20250625
  9. LANSOPRAZOLE [Concomitant]
     Active Substance: LANSOPRAZOLE
     Indication: Ill-defined disorder
     Dosage: DOSE FORM: TPP YC - PLEASE RECLASSIFY.?TAKE ONE DAILY FOR ULCERS/INDIGESTION.
     Dates: start: 20250204
  10. ACETAMINOPHEN\BUCLIZINE HYDROCHLORIDE\CODEINE [Concomitant]
     Active Substance: ACETAMINOPHEN\BUCLIZINE HYDROCHLORIDE\CODEINE
     Indication: Ill-defined disorder
     Dates: start: 20250204
  11. MACROGOL COMPOUND [Concomitant]
     Indication: Ill-defined disorder
     Dates: start: 20250204
  12. NITROGLYCERIN [Concomitant]
     Active Substance: NITROGLYCERIN
     Indication: Ill-defined disorder
     Dates: start: 20250204
  13. ASPIRIN DL-LYSINE\METOCLOPRAMIDE [Concomitant]
     Active Substance: ASPIRIN DL-LYSINE\METOCLOPRAMIDE
     Indication: Ill-defined disorder
     Dates: start: 20250204
  14. SERTRALINE [Concomitant]
     Active Substance: SERTRALINE HYDROCHLORIDE
     Indication: Ill-defined disorder
     Dosage: DOSE FORM: TPP YC - PLEASE RECLASSIFY. ?TAKE ONE EACH DAY TO PREVENT LOW MOOD.
     Dates: start: 20250204
  15. FERROUS GLUCONATE [Concomitant]
     Active Substance: FERROUS GLUCONATE
     Indication: Ill-defined disorder
     Dosage: DOSE FORM: TPP YC - PLEASE RECLASSIFY.?TAKE ONE DAILY
     Dates: start: 20250624, end: 20250722
  16. NAPROXEN [Concomitant]
     Active Substance: NAPROXEN
     Indication: Ill-defined disorder
     Dosage: DOSE FORM: TPP YC - PLEASE RECLASSIFY.?TAKE ONE TWICE DAILY
     Dates: start: 20250204
  17. ZOLMITRIPTAN [Concomitant]
     Active Substance: ZOLMITRIPTAN
     Indication: Ill-defined disorder
     Dates: start: 20250204
  18. LIDOCAINE [Concomitant]
     Active Substance: LIDOCAINE
     Indication: Ill-defined disorder
     Dates: start: 20250204
  19. ESTRIOL [Concomitant]
     Active Substance: ESTRIOL
     Indication: Ill-defined disorder
     Dates: start: 20250204
  20. AMITRIPTYLINE HYDROCHLORIDE [Concomitant]
     Active Substance: AMITRIPTYLINE HYDROCHLORIDE
     Indication: Ill-defined disorder
     Dates: start: 20250204

REACTIONS (1)
  - Anaphylactic reaction [Recovered/Resolved]
